FAERS Safety Report 8608753 (Version 2)
Quarter: 2012Q4

REPORT INFORMATION
  Report Type: 
  Country: JP (occurrence: JP)
  Receive Date: 20120611
  Receipt Date: 20121029
  Transmission Date: 20130627
  Serious: Yes (Hospitalization)
  Sender: FDA-Public Use
  Company Number: JP-ELI_LILLY_AND_COMPANY-JP201206000467

PATIENT
  Age: 86 Year
  Sex: Female
  Weight: 42.2 kg

DRUGS (16)
  1. GEMZAR [Suspect]
     Indication: BILE DUCT CANCER
     Dosage: 800 mg, qd
     Route: 042
     Dates: start: 20081126, end: 20081126
  2. GEMZAR [Suspect]
     Dosage: 600 mg, other
     Dates: start: 20081203, end: 20090119
  3. BAYASPIRIN [Concomitant]
     Dosage: 100 mg, qd
     Route: 048
     Dates: start: 20080930
  4. BLOPRESS                                /GFR/ [Concomitant]
     Dosage: 8 mg, qd
     Route: 048
     Dates: start: 20080930
  5. CONIEL [Concomitant]
     Dosage: 4 mg, qd
     Route: 048
     Dates: start: 20080930
  6. ITOROL [Concomitant]
     Dosage: 20 mg, tid
     Route: 048
     Dates: start: 20080930
  7. FAMOTIDINE [Concomitant]
     Dosage: 10 mg, bid
     Route: 048
     Dates: start: 20090930
  8. SIGMART [Concomitant]
     Dosage: 5 mg, tid
     Route: 048
     Dates: start: 20080930
  9. LIPOVAS [Concomitant]
     Dosage: 5 mg, qd
     Route: 048
     Dates: start: 20080930
  10. WARFARIN [Concomitant]
     Dosage: 1 mg, bid
     Route: 048
     Dates: start: 20090930
  11. METHYCOBAL [Concomitant]
     Dosage: 500 ug, bid
     Route: 048
     Dates: start: 20090930
  12. PURSENNID [Concomitant]
     Dosage: 12 mg, bid
     Route: 048
     Dates: start: 20081126
  13. MOHRUS [Concomitant]
     Dosage: UNK
     Route: 048
     Dates: start: 20081202
  14. PARIET [Concomitant]
     Dosage: 10 mg, qd
     Route: 048
     Dates: start: 20090105
  15. GASMOTIN [Concomitant]
     Dosage: 5 mg, tid
     Route: 048
     Dates: start: 20090105
  16. DECADRON                                /CAN/ [Concomitant]
     Dosage: UNK
     Route: 042
     Dates: start: 20081126

REACTIONS (1)
  - Interstitial lung disease [Recovering/Resolving]
